FAERS Safety Report 22063615 (Version 1)
Quarter: 2023Q1

REPORT INFORMATION
  Report Type: Spontaneous
  Country: US (occurrence: US)
  Receive Date: 20230306
  Receipt Date: 20230306
  Transmission Date: 20230417
  Serious: No
  Sender: FDA-Public Use
  Company Number: US-PADAGIS-2023PAD00173

PATIENT

DRUGS (1)
  1. BELLADONNA AND OPIUM [Suspect]
     Active Substance: ATROPA BELLADONNA\OPIUM
     Indication: Bladder spasm
     Dosage: UNK, (AS NEEDED)
     Route: 065
     Dates: start: 2020, end: 20230205

REACTIONS (4)
  - Urinary tract infection [Unknown]
  - Product use in unapproved indication [Unknown]
  - Expired product administered [Unknown]
  - Product storage error [Unknown]
